FAERS Safety Report 5208806-6 (Version None)
Quarter: 2007Q1

REPORT INFORMATION
  Report Type: 
  Country: None (occurrence: None)
  Receive Date: 20070116
  Receipt Date: 20070109
  Transmission Date: 20070707
  Serious: Yes (Other)
  Sender: FDA-Public Use
  Company Number: JP-ELI_LILLY_AND_COMPANY-JP200612004273

PATIENT
  Age: 68 Year
  Sex: Female

DRUGS (2)
  1. GEMZAR [Suspect]
     Indication: BILE DUCT CANCER RECURRENT
     Dosage: 1200 MG, OTHER
     Route: 042
     Dates: start: 20060809, end: 20060823
  2. GEMZAR [Suspect]
     Dosage: 1000 MG, OTHER
     Route: 042
     Dates: start: 20061108, end: 20061220

REACTIONS (1)
  - ARTHRALGIA [None]
